FAERS Safety Report 18642561 (Version 1)
Quarter: 2020Q4

REPORT INFORMATION
  Report Type: Spontaneous
  Country: US (occurrence: US)
  Receive Date: 20201219
  Receipt Date: 20201219
  Transmission Date: 20210114
  Serious: Yes (Disabling, Other)
  Sender: FDA-Public Use
  Company Number: None

PATIENT
  Age: 33 Year
  Sex: Female
  Weight: 63 kg

DRUGS (14)
  1. CETIRIZINE [Suspect]
     Active Substance: CETIRIZINE HYDROCHLORIDE
     Indication: ASTHMA
     Dosage: ?          QUANTITY:1 TABLET(S);?
     Route: 048
     Dates: start: 20180205, end: 20190830
  2. CALCIUM [Concomitant]
     Active Substance: CALCIUM
  3. SYNTHROID [Concomitant]
     Active Substance: LEVOTHYROXINE SODIUM
  4. SUMATRIPTAN. [Concomitant]
     Active Substance: SUMATRIPTAN
  5. VITAMIN D [Concomitant]
     Active Substance: VITAMIN D NOS
  6. METHIMAZOLE. [Concomitant]
     Active Substance: METHIMAZOLE
  7. AMITRIPTYLINE [Suspect]
     Active Substance: AMITRIPTYLINE
  8. ALBUTEROL. [Concomitant]
     Active Substance: ALBUTEROL
  9. SPIRONOLACTONE. [Concomitant]
     Active Substance: SPIRONOLACTONE
  10. MAGNESIUM [Concomitant]
     Active Substance: MAGNESIUM
  11. MELATONIN [Concomitant]
     Active Substance: MELATONIN
  12. AMITRIPTYLINE [Concomitant]
     Active Substance: AMITRIPTYLINE
  13. PROPRANOLOL [Concomitant]
     Active Substance: PROPRANOLOL HYDROCHLORIDE
  14. MONTELUKAST [Suspect]
     Active Substance: MONTELUKAST SODIUM
     Indication: ASTHMA
     Dosage: ?          QUANTITY:1 TABLET(S);?
     Route: 048
     Dates: start: 20180205, end: 20190825

REACTIONS (24)
  - Yellow skin [None]
  - Irritability [None]
  - Concussion [None]
  - Akathisia [None]
  - Palpitations [None]
  - Headache [None]
  - Hyperthyroidism [None]
  - Restlessness [None]
  - Anxiety [None]
  - Withdrawal syndrome [None]
  - Blood pressure diastolic increased [None]
  - Insomnia [None]
  - Vomiting [None]
  - Post-traumatic stress disorder [None]
  - Off label use [None]
  - Migraine [None]
  - Night blindness [None]
  - Photopsia [None]
  - Hyperhidrosis [None]
  - Fatigue [None]
  - Suicidal ideation [None]
  - Road traffic accident [None]
  - Agitation [None]
  - Tension [None]

NARRATIVE: CASE EVENT DATE: 20180205
